FAERS Safety Report 25957671 (Version 2)
Quarter: 2025Q4

REPORT INFORMATION
  Report Type: Spontaneous
  Country: US (occurrence: US)
  Receive Date: 20251024
  Receipt Date: 20251027
  Transmission Date: 20260119
  Serious: No
  Sender: PFIZER
  Company Number: US-PFIZER INC-202500208616

PATIENT
  Age: 65 Year
  Sex: Male
  Weight: 76.1 kg

DRUGS (1)
  1. VYNDAMAX [Interacting]
     Active Substance: TAFAMIDIS
     Indication: Cardiac amyloidosis
     Dosage: 61 MG, 1X/DAY
     Route: 048
     Dates: start: 20240920

REACTIONS (2)
  - Heart rate decreased [Unknown]
  - Drug interaction [Recovered/Resolved]
